FAERS Safety Report 5455134-X (Version None)
Quarter: 2007Q3

REPORT INFORMATION
  Report Type: 
  Country: None (occurrence: None)
  Receive Date: 20070913
  Receipt Date: 20070913
  Transmission Date: 20080115
  Serious: Yes (Hospitalization)
  Sender: FDA-Public Use
  Company Number: None

PATIENT
  Age: 55 Year
  Sex: Female
  Weight: 58.9676 kg

DRUGS (2)
  1. FOSAMAX [Suspect]
     Indication: RADIOTHERAPY
     Dosage: ONE DAILY PO
     Route: 048
     Dates: start: 19850101, end: 19980101
  2. FOSAMAX [Suspect]
     Indication: OSTEOPENIA
     Dosage: ONE WEEKLY PO
     Route: 048

REACTIONS (2)
  - EXOSTOSIS [None]
  - SALIVARY GLAND CALCULUS [None]
